FAERS Safety Report 10490047 (Version 1)
Quarter: 2014Q4

REPORT INFORMATION
  Report Type: Other
  Country: GB (occurrence: GB)
  Receive Date: 20141002
  Receipt Date: 20141002
  Transmission Date: 20150528
  Serious: Yes (Other)
  Sender: FDA-Public Use
  Company Number: GB-MYLANLABS-2014M1004532

PATIENT

DRUGS (1)
  1. VENLAFAXINE [Suspect]
     Active Substance: VENLAFAXINE HYDROCHLORIDE
     Indication: FIBROMYALGIA
     Dosage: VARIOUS DOSES
     Route: 048
     Dates: start: 2011, end: 20140824

REACTIONS (7)
  - Paraesthesia [Not Recovered/Not Resolved]
  - Crying [Unknown]
  - Dizziness [Unknown]
  - Chills [Unknown]
  - Hyperhidrosis [Unknown]
  - Nausea [Unknown]
  - Withdrawal syndrome [Unknown]

NARRATIVE: CASE EVENT DATE: 20140826
